FAERS Safety Report 8928055 (Version 1)
Quarter: 2012Q4

REPORT INFORMATION
  Report Type: 
  Country: JP (occurrence: JP)
  Receive Date: 20121127
  Receipt Date: 20121127
  Transmission Date: 20130627
  Serious: Yes (Other)
  Sender: FDA-Public Use
  Company Number: JP-PFIZER INC-2012292724

PATIENT
  Sex: Female

DRUGS (2)
  1. XALATAN [Suspect]
  2. TIMOPTOL [Concomitant]
     Dosage: UNK

REACTIONS (1)
  - Cataract [Unknown]
